FAERS Safety Report 7833191-0 (Version None)
Quarter: 2011Q4

REPORT INFORMATION
  Report Type: 
  Country: None (occurrence: None)
  Receive Date: 20111024
  Receipt Date: 20110907
  Transmission Date: 20120403
  Serious: Yes (Hospitalization)
  Sender: FDA-Public Use
  Company Number: DE-US-EMD SERONO, INC.-7076439

PATIENT
  Sex: Female
  Weight: 80 kg

DRUGS (1)
  1. REBIF [Suspect]
     Indication: PRODUCT USED FOR UNKNOWN INDICATION
     Dates: start: 20110506

REACTIONS (3)
  - SKIN NECROSIS [None]
  - SKIN DISCOLOURATION [None]
  - INJECTION SITE PAIN [None]
